FAERS Safety Report 4750248-1 (Version None)
Quarter: 2005Q3

REPORT INFORMATION
  Report Type: 
  Country: None (occurrence: None)
  Receive Date: 20050823
  Receipt Date: 20050617
  Transmission Date: 20060218
  Serious: Yes (Other)
  Sender: FDA-Public Use
  Company Number: PHBS2005JP08798

PATIENT
  Age: 25 Year
  Sex: Female

DRUGS (2)
  1. SANOREX [Suspect]
     Indication: OBESITY
     Dosage: 0.5 MG, UNK
     Route: 048
     Dates: start: 20050201, end: 20050301
  2. SANOREX [Suspect]
     Dosage: 1 MG, QD
     Route: 048
     Dates: start: 20050301, end: 20050617

REACTIONS (2)
  - ABORTION [None]
  - DRUG EXPOSURE DURING PREGNANCY [None]
